FAERS Safety Report 18621422 (Version 1)
Quarter: 2020Q4

REPORT INFORMATION
  Report Type: Spontaneous
  Country: SI (occurrence: SI)
  Receive Date: 20201215
  Receipt Date: 20201215
  Transmission Date: 20210114
  Serious: Yes (Death, Hospitalization)
  Sender: FDA-Public Use
  Company Number: SI-009507513-2012SVN006239

PATIENT
  Age: 66 Year

DRUGS (7)
  1. OXALIPLATIN. [Concomitant]
     Active Substance: OXALIPLATIN
     Dosage: LEVEL III OF SYSTEMIC THERAPY ACCORDING TO FOLFOX PROCEDURE - 3 CYCLES
     Dates: start: 20200218, end: 202004
  2. ETOPOSIDE. [Concomitant]
     Active Substance: ETOPOSIDE
     Dates: start: 20200521
  3. FLUOROURACIL. [Concomitant]
     Active Substance: FLUOROURACIL
     Dosage: LEVEL III OF SYSTEMIC THERAPY ACCORDING TO FOLFOX PROCEDURE - 3 CYCLES
     Dates: start: 20200218, end: 202004
  4. FOLINIC ACID [Concomitant]
     Active Substance: LEUCOVORIN
     Dosage: LEVEL III OF SYSTEMIC THERAPY ACCORDING TO FOLFOX PROCEDURE - 3 CYCLES
     Dates: start: 20200218, end: 202004
  5. CARBOPLATIN. [Concomitant]
     Active Substance: CARBOPLATIN
     Dates: start: 20200521
  6. TEMOZOLOMIDE. [Suspect]
     Active Substance: TEMOZOLOMIDE
     Indication: MIXED ADENONEUROENDOCRINE CARCINOMA
     Route: 048
     Dates: start: 20200428
  7. XELODA [Suspect]
     Active Substance: CAPECITABINE
     Indication: MIXED ADENONEUROENDOCRINE CARCINOMA
     Route: 065
     Dates: start: 20200428

REACTIONS (4)
  - Diarrhoea [Unknown]
  - Death [Fatal]
  - Weight decreased [Unknown]
  - Vomiting [Unknown]

NARRATIVE: CASE EVENT DATE: 20200512
